FAERS Safety Report 5880941-9 (Version None)
Quarter: 2008Q3

REPORT INFORMATION
  Report Type: 
  Country: None (occurrence: None)
  Receive Date: 20080910
  Receipt Date: 20080826
  Transmission Date: 20090109
  Serious: Yes (Hospitalization)
  Sender: FDA-Public Use
  Company Number: PAR_02322_2008

PATIENT
  Sex: Male

DRUGS (2)
  1. CAPOTEN [Suspect]
     Indication: HYPERTENSION
     Dosage: (DF SUBLINGUAL)
     Route: 060
  2. CAPTOPRIL [Suspect]
     Indication: HYPERTENSION
     Dosage: (DF)

REACTIONS (3)
  - CONDITION AGGRAVATED [None]
  - DRUG INEFFECTIVE [None]
  - HYPERTENSION [None]
